FAERS Safety Report 5907069-3 (Version None)
Quarter: 2008Q4

REPORT INFORMATION
  Report Type: 
  Country: None (occurrence: None)
  Receive Date: 20081002
  Receipt Date: 20081002
  Transmission Date: 20090506
  Serious: Yes (Death)
  Sender: FDA-Public Use
  Company Number: None

PATIENT
  Age: 84 Year
  Sex: Female
  Weight: 68.0396 kg

DRUGS (2)
  1. LYRICA [Suspect]
     Indication: ARTHRALGIA
     Dates: start: 20071117, end: 20071210
  2. LYRICA [Suspect]
     Indication: PAIN IN EXTREMITY
     Dates: start: 20071117, end: 20071210

REACTIONS (2)
  - COMA [None]
  - DYSARTHRIA [None]
